FAERS Safety Report 19490960 (Version 1)
Quarter: 2021Q3

REPORT INFORMATION
  Report Type: Spontaneous
  Country: DE (occurrence: DE)
  Receive Date: 20210705
  Receipt Date: 20210705
  Transmission Date: 20211014
  Serious: Yes (Hospitalization)
  Sender: FDA-Public Use
  Company Number: DE-TEVA-2021-DE-1928960

PATIENT
  Age: 53 Year
  Sex: Female

DRUGS (3)
  1. HYDROCHLOROQUINE [Suspect]
     Active Substance: HYDROXYCHLOROQUINE SULFATE
     Indication: COVID-19
     Dosage: ADDITIONAL INFO: OFF LABEL USE
     Route: 065
  2. CEFTRIAXONE. [Suspect]
     Active Substance: CEFTRIAXONE
     Indication: COVID-19
     Dosage: ADDITIONAL INFO: OFF LABEL USE
     Route: 065
  3. CASPOFUNGIN [Suspect]
     Active Substance: CASPOFUNGIN
     Indication: COVID-19
     Dosage: ADDITIONAL INFO: OFF LABEL USE
     Route: 065

REACTIONS (2)
  - Off label use [Unknown]
  - Brugada syndrome [Recovered/Resolved]
